FAERS Safety Report 25539345 (Version 3)
Quarter: 2025Q3

REPORT INFORMATION
  Report Type: Spontaneous
  Country: US (occurrence: US)
  Receive Date: 20250710
  Receipt Date: 20250715
  Transmission Date: 20251021
  Serious: No
  Sender: PFIZER
  Company Number: US-PFIZER INC-202500139594

PATIENT
  Age: 52 Year
  Sex: Male

DRUGS (2)
  1. LITFULO [Interacting]
     Active Substance: RITLECITINIB TOSYLATE
     Indication: Vitiligo
     Dosage: 50 MG, 1X/DAY
     Route: 048
  2. LITFULO [Interacting]
     Active Substance: RITLECITINIB TOSYLATE
     Indication: Alopecia areata

REACTIONS (1)
  - Drug interaction [Unknown]
